FAERS Safety Report 20824643 (Version 1)
Quarter: 2022Q2

REPORT INFORMATION
  Report Type: Spontaneous
  Country: CN (occurrence: CN)
  Receive Date: 20220513
  Receipt Date: 20220513
  Transmission Date: 20220721
  Serious: Yes (Life-Threatening, Other)
  Sender: FDA-Public Use
  Company Number: CN-SUN PHARMACEUTICAL INDUSTRIES LTD-2020R1-259895

PATIENT
  Age: 47 Year
  Sex: Female

DRUGS (3)
  1. CISPLATIN [Suspect]
     Active Substance: CISPLATIN
     Indication: Sarcomatoid carcinoma of the lung
     Dosage: 75 MILLIGRAM/SQ. METER, EVERY 3 WEEKS, 4 CYCLES
     Route: 065
  2. DOXORUBICIN [Suspect]
     Active Substance: DOXORUBICIN
     Indication: Sarcomatoid carcinoma of the lung
     Dosage: 40 MILLIGRAM/SQ. METER, EVERY 3 WEEKS, 4 CYCLES
     Route: 065
  3. CAMRELIZUMAB [Suspect]
     Active Substance: CAMRELIZUMAB
     Indication: Sarcomatoid carcinoma of the lung
     Dosage: 200 MILLIGRAM, 1DOSE/2 WEEKS, 6 CYCLES
     Route: 042

REACTIONS (4)
  - Leukopenia [Unknown]
  - Thrombocytopenia [Unknown]
  - Rash [Unknown]
  - Therapy partial responder [Unknown]
